FAERS Safety Report 10477389 (Version 2)
Quarter: 2014Q4

REPORT INFORMATION
  Report Type: Spontaneous
  Country: GB (occurrence: GB)
  Receive Date: 20140926
  Receipt Date: 20141001
  Transmission Date: 20150528
  Serious: Yes (Other)
  Sender: FDA-Public Use
  Company Number: GB-RANBAXY-2014RR-85570

PATIENT
  Age: 80 Year
  Sex: Female

DRUGS (7)
  1. IRON [Suspect]
     Active Substance: IRON
     Indication: ANAEMIA
     Dosage: UNK
     Route: 065
  2. BUPRENORPHINE [Suspect]
     Active Substance: BUPRENORPHINE
     Indication: PRODUCT USED FOR UNKNOWN INDICATION
     Dosage: 5 ?G, Q1H
     Route: 062
  3. BUTRANS [Suspect]
     Active Substance: BUPRENORPHINE
     Indication: HERPES ZOSTER
     Dosage: 120 MCG
     Route: 062
  4. GABAPENTIN. [Suspect]
     Active Substance: GABAPENTIN
     Indication: NEURALGIA
     Dosage: UNK
     Route: 065
  5. BUTRANS [Suspect]
     Active Substance: BUPRENORPHINE
     Indication: NEURALGIA
     Dosage: UNK
     Route: 065
  6. MORPHINE [Suspect]
     Active Substance: MORPHINE
     Indication: PRODUCT USED FOR UNKNOWN INDICATION
     Dosage: UNK
     Route: 065
  7. ORAMORPH SR SUSTAINED RELEASE [Suspect]
     Active Substance: MORPHINE SULFATE
     Indication: PRODUCT USED FOR UNKNOWN INDICATION
     Dosage: 20 ML
     Route: 048
     Dates: start: 201407

REACTIONS (5)
  - Dry mouth [Unknown]
  - Clumsiness [Unknown]
  - Balance disorder [Unknown]
  - Depression [Unknown]
  - Visual acuity reduced [Unknown]
